FAERS Safety Report 6405935-6 (Version None)
Quarter: 2009Q4

REPORT INFORMATION
  Report Type: 
  Country: None (occurrence: None)
  Receive Date: 20091016
  Receipt Date: 20091016
  Transmission Date: 20100525
  Serious: No
  Sender: FDA-Public Use
  Company Number: None

PATIENT
  Age: 23 Year
  Sex: Female
  Weight: 68.0396 kg

DRUGS (2)
  1. ZOLOFT [Suspect]
     Indication: ANXIETY
     Dosage: 1 50MG 1 TIME A DAY
     Dates: start: 20091011, end: 20091015
  2. ZOLOFT [Suspect]
     Indication: DEPRESSION
     Dosage: 1 50MG 1 TIME A DAY
     Dates: start: 20091011, end: 20091015

REACTIONS (2)
  - CHEST PAIN [None]
  - HEART RATE IRREGULAR [None]
